FAERS Safety Report 10930708 (Version 1)
Quarter: 2015Q1

REPORT INFORMATION
  Report Type: Spontaneous
  Country: US (occurrence: None)
  Receive Date: 20150318
  Receipt Date: 20150318
  Transmission Date: 20150721
  Serious: Yes (Life-Threatening, Hospitalization)
  Sender: FDA-Public Use
  Company Number: None

PATIENT
  Age: 71 Year
  Sex: Female
  Weight: 32 kg

DRUGS (11)
  1. PROCHLORPERAZINE. [Concomitant]
     Active Substance: PROCHLORPERAZINE
  2. ALBUTEROL. [Concomitant]
     Active Substance: ALBUTEROL
  3. ALPRAZOLAM. [Concomitant]
     Active Substance: ALPRAZOLAM
  4. BENZONATATE. [Concomitant]
     Active Substance: BENZONATATE
  5. DILTIAZEM [Concomitant]
     Active Substance: DILTIAZEM
  6. VICODIN [Concomitant]
     Active Substance: ACETAMINOPHEN\HYDROCODONE BITARTRATE
  7. MIRTAZAPINE. [Concomitant]
     Active Substance: MIRTAZAPINE
  8. LIDOCAINE. [Concomitant]
     Active Substance: LIDOCAINE
  9. WARFARIN [Suspect]
     Active Substance: WARFARIN
     Indication: PULMONARY EMBOLISM
     Dosage: 1 TABLET
     Route: 048
  10. SPIRIVA [Concomitant]
     Active Substance: TIOTROPIUM BROMIDE MONOHYDRATE
  11. CITALOPRAM [Concomitant]
     Active Substance: CITALOPRAM HYDROBROMIDE

REACTIONS (9)
  - Blood potassium decreased [None]
  - Chills [None]
  - International normalised ratio increased [None]
  - Upper respiratory tract infection [None]
  - Platelet count decreased [None]
  - Haematuria [None]
  - Lung infiltration [None]
  - Pyrexia [None]
  - Haemoglobin decreased [None]

NARRATIVE: CASE EVENT DATE: 20140928
